FAERS Safety Report 9613400 (Version 1)
Quarter: 2013Q4

REPORT INFORMATION
  Report Type: Report from Study
  Country: DE (occurrence: DE)
  Receive Date: 20131010
  Receipt Date: 20131010
  Transmission Date: 20140711
  Serious: Yes (Hospitalization)
  Sender: FDA-Public Use
  Company Number: DE-JNJFOC-20131000160

PATIENT
  Age: 9 Year
  Sex: Male
  Weight: 33.2 kg

DRUGS (10)
  1. REMICADE [Suspect]
     Indication: CROHN^S DISEASE
     Route: 042
     Dates: start: 20080320, end: 20100727
  2. 5-ASA [Concomitant]
     Route: 048
  3. OMEPRAZOLE [Concomitant]
     Route: 065
  4. CALCILAC [Concomitant]
     Route: 065
  5. DESLORATADINE [Concomitant]
     Indication: HYPERSENSITIVITY
     Route: 065
  6. SALBUTAMOL [Concomitant]
     Route: 065
  7. MONTELUKAST [Concomitant]
     Route: 065
  8. DEXAMETHASONE [Concomitant]
     Route: 047
  9. ADVAIR [Concomitant]
     Route: 065
  10. VIANI [Concomitant]
     Route: 065

REACTIONS (1)
  - Staphylococcal infection [Recovered/Resolved]
